FAERS Safety Report 25358994 (Version 1)
Quarter: 2025Q2

REPORT INFORMATION
  Report Type: Spontaneous
  Country: CN (occurrence: CN)
  Receive Date: 20250526
  Receipt Date: 20250526
  Transmission Date: 20250716
  Serious: Yes (Hospitalization)
  Sender: Kenvue
  Company Number: CN-KENVUE-20250506505

PATIENT

DRUGS (2)
  1. TYLENOL [Suspect]
     Active Substance: ACETAMINOPHEN
     Indication: Antipyresis
     Dosage: 1 DOSAGE FORM, TWICE A DAY
     Route: 048
     Dates: start: 20250428, end: 20250428
  2. ACETAMINOPHEN\AMANTADINE HYDROCHLORIDE [Suspect]
     Active Substance: ACETAMINOPHEN\AMANTADINE HYDROCHLORIDE
     Indication: Upper respiratory tract infection
     Dosage: 1 DOSAGE FORM, TWICE A DAY
     Route: 048
     Dates: start: 20250428

REACTIONS (11)
  - Hepatic enzyme increased [Recovering/Resolving]
  - Anaemia [Recovering/Resolving]
  - Asthenia [Recovering/Resolving]
  - Chromaturia [Recovering/Resolving]
  - Yellow skin [Recovering/Resolving]
  - Pruritus [Recovering/Resolving]
  - Diverticulum intestinal [Recovering/Resolving]
  - Discomfort [Recovering/Resolving]
  - Blood bilirubin increased [Recovering/Resolving]
  - Product administration error [Unknown]
  - Decreased appetite [Recovering/Resolving]

NARRATIVE: CASE EVENT DATE: 20250101
